FAERS Safety Report 7417178-8 (Version None)
Quarter: 2011Q2

REPORT INFORMATION
  Report Type: 
  Country: None (occurrence: None)
  Receive Date: 20110415
  Receipt Date: 20110318
  Transmission Date: 20111010
  Serious: Yes (Hospitalization, Other)
  Sender: FDA-Public Use
  Company Number: US-BAYER-201040294NA

PATIENT
  Age: 35 Year
  Sex: Female
  Weight: 49 kg

DRUGS (4)
  1. MULTI-VITAMIN [Concomitant]
  2. YAZ [Suspect]
     Indication: ACNE
     Dosage: UNK
  3. YASMIN [Suspect]
     Indication: ACNE
     Dosage: UNK
  4. OCELLA [Suspect]
     Indication: ACNE
     Dosage: UNK

REACTIONS (2)
  - CHOLECYSTITIS [None]
  - ABDOMINAL PAIN UPPER [None]
